FAERS Safety Report 8943643 (Version 1)
Quarter: 2012Q4

REPORT INFORMATION
  Report Type: 
  Country: US (occurrence: US)
  Receive Date: 20121204
  Receipt Date: 20121204
  Transmission Date: 20130627
  Serious: Yes (Other)
  Sender: FDA-Public Use
  Company Number: PHEH2012US023594

PATIENT
  Sex: Male

DRUGS (11)
  1. EXELON PATCH [Suspect]
     Dosage: UNK UKN, UNK
     Route: 062
     Dates: start: 2010
  2. ADVAIR [Suspect]
     Dosage: UNK UKN, UNK
  3. INDURGAN [Concomitant]
  4. ATENOLOL [Concomitant]
     Dosage: UNK UKN, UNK
  5. LASIX [Concomitant]
     Dosage: UNK UKN, UNK
  6. GLIPIZIDE [Concomitant]
  7. PAXIL [Concomitant]
     Dosage: UNK UKN, UNK
  8. PLAVIX [Concomitant]
     Dosage: UNK UKN, UNK
  9. PROCARDIA [Concomitant]
     Dosage: UNK UKN, UNK
  10. POTASSIUM [Concomitant]
     Dosage: UNK UKN, UNK
  11. ASPIRIN [Concomitant]
     Dosage: UNK UKN, UNK

REACTIONS (1)
  - Myocardial infarction [Unknown]
